FAERS Safety Report 12004737 (Version 3)
Quarter: 2016Q3

REPORT INFORMATION
  Report Type: Spontaneous
  Country: US (occurrence: US)
  Receive Date: 20160204
  Receipt Date: 20160810
  Transmission Date: 20161109
  Serious: Yes (Hospitalization)
  Sender: FDA-Public Use
  Company Number: US-HORIZON-BUP-RAV-0030-2016

PATIENT
  Age: 16 Year
  Sex: Female
  Weight: 62.6 kg

DRUGS (7)
  1. BUPHENYL [Suspect]
     Active Substance: SODIUM PHENYLBUTYRATE
     Indication: UREA CYCLE ENZYME DEFICIENCY
     Dates: start: 20040416
  2. CYCLINEX 2 [Concomitant]
     Dosage: 113 G
  3. ARGININE [Concomitant]
     Active Substance: ARGININE
     Dosage: 16 G
  4. PROTEINS [Concomitant]
     Dosage: 16 G
  5. RAVICTI [Suspect]
     Active Substance: GLYCEROL PHENYLBUTYRATE
     Indication: UREA CYCLE ENZYME DEFICIENCY
     Dosage: 4 ML BREAKFAST, 4 ML LUNCH AND 5 ML DINNER
     Route: 048
     Dates: start: 20040416
  6. ZOLOFT [Concomitant]
     Active Substance: SERTRALINE HYDROCHLORIDE
  7. PROPHREE [Concomitant]

REACTIONS (8)
  - Sepsis [Unknown]
  - Hyperammonaemia [Unknown]
  - Anal incontinence [Unknown]
  - Mania [Unknown]
  - Sinusitis [Unknown]
  - Aggression [Unknown]
  - Vomiting [Unknown]
  - Dysmenorrhoea [Unknown]

NARRATIVE: CASE EVENT DATE: 201302
